FAERS Safety Report 9177688 (Version 3)
Quarter: 2013Q3

REPORT INFORMATION
  Report Type: Spontaneous
  Country: DK (occurrence: DK)
  Receive Date: 20130321
  Receipt Date: 20130819
  Transmission Date: 20140515
  Serious: Yes (Hospitalization)
  Sender: FDA-Public Use
  Company Number: DK-TEVA-391335ISR

PATIENT
  Age: 49 Year
  Sex: Male

DRUGS (2)
  1. LAMOTRIGINE [Suspect]
     Indication: NEURALGIA
     Dosage: 25 MILLIGRAM DAILY;
     Route: 048
     Dates: start: 20101109
  2. LAMOTRIGINE [Suspect]
     Dosage: 50 MILLIGRAM DAILY;
     Route: 048
     Dates: end: 20101207

REACTIONS (10)
  - Rash pruritic [Recovered/Resolved]
  - Pyrexia [Recovered/Resolved]
  - Fatigue [Unknown]
  - Arthralgia [Unknown]
  - Myalgia [Unknown]
  - Chills [Recovered/Resolved]
  - Weight decreased [Recovered/Resolved]
  - Malaise [Unknown]
  - Hypersensitivity [Recovered/Resolved]
  - Pyrexia [Unknown]
